FAERS Safety Report 11938820 (Version 2)
Quarter: 2016Q1

REPORT INFORMATION
  Report Type: Spontaneous
  Country: US (occurrence: US)
  Receive Date: 20160122
  Receipt Date: 20160218
  Transmission Date: 20160526
  Serious: No
  Sender: FDA-Public Use
  Company Number: US-ROXANE LABORATORIES, INC.-2016-RO-00130RO

PATIENT
  Sex: Female

DRUGS (1)
  1. IPRATROPIUM BROMIDE NASAL SOLUTION, 0.03% [Suspect]
     Active Substance: IPRATROPIUM BROMIDE
     Indication: MULTIPLE ALLERGIES
     Route: 045

REACTIONS (2)
  - Drug ineffective [Not Recovered/Not Resolved]
  - Product quality issue [Not Recovered/Not Resolved]
